FAERS Safety Report 13863346 (Version 1)
Quarter: 2017Q3

REPORT INFORMATION
  Report Type: Report from Study
  Country: BR (occurrence: BR)
  Receive Date: 20170814
  Receipt Date: 20170814
  Transmission Date: 20171127
  Serious: Yes (Life-Threatening, Hospitalization, Other)
  Sender: FDA-Public Use
  Company Number: BR-ROCHE-1971355

PATIENT
  Age: 28 Year
  Sex: Female
  Weight: 108 kg

DRUGS (6)
  1. PREDNISONE. [Concomitant]
     Active Substance: PREDNISONE
     Indication: PRODUCT USED FOR UNKNOWN INDICATION
     Dosage: 20 MG FOR AT LEAST 2 YEARS.
     Route: 048
  2. HIXIZINE [Concomitant]
     Active Substance: HYDROXYZINE HYDROCHLORIDE
     Indication: PRODUCT USED FOR UNKNOWN INDICATION
     Route: 048
     Dates: start: 201612
  3. XOLAIR [Suspect]
     Active Substance: OMALIZUMAB
     Dosage: 2 APPLICATIONS
     Route: 065
     Dates: start: 201701
  4. XOLAIR [Suspect]
     Active Substance: OMALIZUMAB
     Indication: URTICARIA CHRONIC
     Dosage: 300 MG, EVERY 4 WEEKS (2 INJECTIONS)
     Route: 058
     Dates: start: 201611
  5. CORTICORTEN [Suspect]
     Active Substance: PREDNISONE
     Indication: URTICARIA
     Dosage: 40 MG, 2 TABLETS A DAY FOR APPROXIMATELY 3 YEARS
     Route: 048
  6. XOLAIR [Suspect]
     Active Substance: OMALIZUMAB
     Route: 058
     Dates: start: 201612

REACTIONS (15)
  - Malaise [Not Recovered/Not Resolved]
  - Hypersensitivity [Unknown]
  - Pyrexia [Unknown]
  - Vomiting [Unknown]
  - Asphyxia [Recovering/Resolving]
  - Laryngospasm [Recovered/Resolved]
  - Blister [Not Recovered/Not Resolved]
  - Urticaria [Not Recovered/Not Resolved]
  - Dermatitis allergic [Unknown]
  - Skin plaque [Unknown]
  - Abdominal pain upper [Unknown]
  - Swelling [Unknown]
  - Weight increased [Unknown]
  - Sepsis [Unknown]
  - Skin irritation [Unknown]

NARRATIVE: CASE EVENT DATE: 201701
